FAERS Safety Report 5238197-6 (Version None)
Quarter: 2007Q1

REPORT INFORMATION
  Report Type: 
  Country: None (occurrence: None)
  Receive Date: 20070215
  Receipt Date: 20070209
  Transmission Date: 20070707
  Serious: Yes (Hospitalization, Other)
  Sender: FDA-Public Use
  Company Number: IN-BAYER-200710915GDS

PATIENT
  Age: 65 Year
  Sex: Male

DRUGS (1)
  1. ASPIRIN [Suspect]
     Indication: DRUG USE FOR UNKNOWN INDICATION
     Route: 065

REACTIONS (9)
  - AMMONIA INCREASED [None]
  - BLOOD BILIRUBIN INCREASED [None]
  - GASTRITIS [None]
  - HAEMATEMESIS [None]
  - HEPATIC ENCEPHALOPATHY [None]
  - HEPATIC ENZYME INCREASED [None]
  - LIVER DISORDER [None]
  - MELAENA [None]
  - PARTIAL SEIZURES [None]
